FAERS Safety Report 4282926-5 (Version None)
Quarter: 2004Q1

REPORT INFORMATION
  Report Type: 
  Country: None (occurrence: None)
  Receive Date: 20040130
  Receipt Date: 20031021
  Transmission Date: 20041129
  Serious: Yes (Hospitalization)
  Sender: FDA-Public Use
  Company Number: US-ROCHE-349816

PATIENT
  Age: 40 Year
  Sex: Male

DRUGS (9)
  1. FUZEON [Suspect]
     Indication: HIV INFECTION
     Route: 058
     Dates: start: 20030925, end: 20031006
  2. STAVUDINE [Concomitant]
     Indication: HIV INFECTION
  3. LOPINAVIR [Concomitant]
     Indication: HIV INFECTION
  4. RITONAVIR [Concomitant]
     Indication: HIV INFECTION
  5. TENOFOVIR [Concomitant]
     Indication: HIV INFECTION
  6. DILANTIN [Concomitant]
  7. NEURONTIN [Concomitant]
  8. BACTRIM [Concomitant]
  9. ZITHROMAX [Concomitant]

REACTIONS (12)
  - ANAEMIA [None]
  - ASTHENIA [None]
  - DEHYDRATION [None]
  - HEPATIC ENZYME INCREASED [None]
  - INFECTION [None]
  - LEUKOPENIA [None]
  - NAUSEA [None]
  - PANCREATITIS [None]
  - PNEUMONIA [None]
  - PYREXIA [None]
  - THROMBOCYTOPENIA [None]
  - VOMITING [None]
